FAERS Safety Report 7783441-4 (Version None)
Quarter: 2011Q3

REPORT INFORMATION
  Report Type: 
  Country: None (occurrence: None)
  Receive Date: 20110928
  Receipt Date: 20110928
  Transmission Date: 20111222
  Serious: Yes (Other)
  Sender: FDA-Public Use
  Company Number: None

PATIENT
  Age: 61 Year
  Sex: Female

DRUGS (2)
  1. CYMBALTA [Suspect]
     Indication: ARTHRALGIA
     Dosage: 1
     Route: 048
     Dates: start: 20110701, end: 20110901
  2. CYMBALTA [Suspect]
     Indication: DEPRESSION
     Dosage: 1
     Route: 048
     Dates: start: 20110701, end: 20110901

REACTIONS (1)
  - ALOPECIA [None]
